FAERS Safety Report 14747436 (Version 1)
Quarter: 2018Q2

REPORT INFORMATION
  Report Type: Spontaneous
  Country: GB (occurrence: GB)
  Receive Date: 20180411
  Receipt Date: 20180411
  Transmission Date: 20180711
  Serious: Yes (Other)
  Sender: FDA-Public Use
  Company Number: GB-MYLANLABS-2018M1022414

PATIENT
  Age: 48 Year
  Sex: Female
  Weight: 158.75 kg

DRUGS (3)
  1. NAPROXEN SODIUM. [Concomitant]
     Active Substance: NAPROXEN SODIUM
     Indication: PRODUCT USED FOR UNKNOWN INDICATION
  2. METRONIDAZOLE. [Suspect]
     Active Substance: METRONIDAZOLE
     Indication: BACTERIAL VAGINOSIS
     Dosage: 800 MG, QD
     Route: 048
     Dates: start: 20180125, end: 20180131
  3. SALBUTAMOL [Concomitant]
     Active Substance: ALBUTEROL
     Indication: PRODUCT USED FOR UNKNOWN INDICATION
     Route: 055

REACTIONS (8)
  - Chills [Unknown]
  - Peripheral swelling [Unknown]
  - Malaise [Unknown]
  - Cellulitis [Not Recovered/Not Resolved]
  - Dermatitis allergic [Not Recovered/Not Resolved]
  - Musculoskeletal stiffness [Recovered/Resolved]
  - Pain [Unknown]
  - Erythema [Unknown]

NARRATIVE: CASE EVENT DATE: 20180127
